FAERS Safety Report 9269542 (Version 2)
Quarter: 2013Q2

REPORT INFORMATION
  Report Type: Spontaneous
  Country: US (occurrence: US)
  Receive Date: 20130503
  Receipt Date: 20130524
  Transmission Date: 20140414
  Serious: Yes (Death, Hospitalization, Other)
  Sender: FDA-Public Use
  Company Number: US-PFIZER INC-2013134512

PATIENT
  Age: 11 Year
  Sex: Male

DRUGS (2)
  1. EPIPEN [Suspect]
     Indication: FOOD ALLERGY
     Dosage: UNK
  2. EPIPEN [Suspect]
     Indication: ANAPHYLACTIC REACTION

REACTIONS (2)
  - Cardiac arrest [Fatal]
  - Drug ineffective [Fatal]
